FAERS Safety Report 9142970 (Version 2)
Quarter: 2013Q2

REPORT INFORMATION
  Report Type: Spontaneous
  Country: AU (occurrence: AU)
  Receive Date: 20130306
  Receipt Date: 20130412
  Transmission Date: 20140414
  Serious: Yes (Other)
  Sender: FDA-Public Use
  Company Number: AU-PFIZER INC-2013076424

PATIENT
  Age: 50 Year
  Sex: Female
  Weight: 84.5 kg

DRUGS (7)
  1. PRISTIQ [Suspect]
     Indication: DEPRESSION
     Dosage: 50 MG, DAILY
     Route: 048
     Dates: start: 20130203, end: 20130304
  2. PRISTIQ [Suspect]
     Indication: ANXIETY
  3. OMEPRAZOLE [Concomitant]
     Dosage: UNK
  4. CELEBREX [Concomitant]
     Dosage: UNK
  5. THYROXINE [Concomitant]
     Indication: HYPOTHYROIDISM
     Dosage: 125 UG, DAILY
     Route: 048
  6. DIAZEPAM [Concomitant]
     Indication: ANXIETY
     Dosage: 5 MG, AS NEEDED
     Route: 048
  7. FELDENE [Concomitant]
     Indication: ARTHRITIS
     Dosage: 10 MG, DAILY
     Route: 048

REACTIONS (19)
  - Suicidal ideation [Recovering/Resolving]
  - Drug hypersensitivity [Recovering/Resolving]
  - Agitation [Recovering/Resolving]
  - Obsessive-compulsive disorder [Recovering/Resolving]
  - Anxiety [Recovering/Resolving]
  - Faeces discoloured [Recovering/Resolving]
  - Anal pruritus [Recovering/Resolving]
  - Abdominal discomfort [Recovering/Resolving]
  - Dissociation [Recovering/Resolving]
  - Tremor [Recovering/Resolving]
  - Headache [Recovering/Resolving]
  - Contusion [Recovering/Resolving]
  - Dry mouth [Recovering/Resolving]
  - Feeling abnormal [Recovering/Resolving]
  - Crying [Recovering/Resolving]
  - Balance disorder [Recovering/Resolving]
  - Listless [Recovering/Resolving]
  - Abdominal pain [Recovering/Resolving]
  - Drug ineffective [Recovering/Resolving]
